FAERS Safety Report 19377426 (Version 2)
Quarter: 2021Q4

REPORT INFORMATION
  Report Type: Spontaneous
  Country: CA (occurrence: CA)
  Receive Date: 20210604
  Receipt Date: 20211015
  Transmission Date: 20220303
  Serious: Yes (Other)
  Sender: FDA-Public Use
  Company Number: CA-PFIZER INC-2021612608

PATIENT
  Sex: Male

DRUGS (2)
  1. EFFEXOR XR [Suspect]
     Active Substance: VENLAFAXINE HYDROCHLORIDE
     Dosage: UNK
     Dates: start: 20121201
  2. EFFEXOR XR [Suspect]
     Active Substance: VENLAFAXINE HYDROCHLORIDE
     Dosage: UNK
     Dates: start: 2013, end: 20201001

REACTIONS (10)
  - Mental impairment [Recovering/Resolving]
  - Obesity [Recovering/Resolving]
  - Motor dysfunction [Recovering/Resolving]
  - Respiratory disorder [Recovering/Resolving]
  - Cardiac disorder [Recovering/Resolving]
  - Sleep apnoea syndrome [Recovering/Resolving]
  - Fatigue [Recovering/Resolving]
  - Disturbance in attention [Recovering/Resolving]
  - Amnesia [Recovering/Resolving]
  - General physical health deterioration [Recovering/Resolving]
